FAERS Safety Report 15580399 (Version 1)
Quarter: 2018Q4

REPORT INFORMATION
  Report Type: Spontaneous
  Country: US (occurrence: US)
  Receive Date: 20181102
  Receipt Date: 20181102
  Transmission Date: 20190205
  Serious: No
  Sender: FDA-Public Use
  Company Number: US-GLAXOSMITHKLINE-US2018194998

PATIENT
  Age: 53 Year
  Sex: Male

DRUGS (2)
  1. TUMS ULTRA [Suspect]
     Active Substance: CALCIUM CARBONATE
     Indication: DYSPEPSIA
     Dosage: UNK
  2. PREVACID 24 HR [Suspect]
     Active Substance: LANSOPRAZOLE
     Indication: DYSPEPSIA
     Dosage: 1 TAB DAILY

REACTIONS (8)
  - Myalgia [Unknown]
  - Off label use [Unknown]
  - Back pain [Unknown]
  - Arthralgia [Unknown]
  - Product use in unapproved indication [Unknown]
  - Incorrect product administration duration [Unknown]
  - Overdose [Unknown]
  - Drug ineffective [Unknown]
